FAERS Safety Report 25450297 (Version 1)
Quarter: 2025Q2

REPORT INFORMATION
  Report Type: Report from Study
  Country: TW (occurrence: TW)
  Receive Date: 20250618
  Receipt Date: 20250618
  Transmission Date: 20250717
  Serious: Yes (Other)
  Sender: ROCHE
  Company Number: TW-ROCHE-10000306004

PATIENT
  Age: 86 Year
  Sex: Male
  Weight: 70.9 kg

DRUGS (2)
  1. AVASTIN [Suspect]
     Active Substance: BEVACIZUMAB
     Indication: Non-small cell lung cancer
     Route: 065
     Dates: start: 20250516
  2. TECENTRIQ [Suspect]
     Active Substance: ATEZOLIZUMAB
     Indication: Non-small cell lung cancer
     Route: 042
     Dates: start: 20250516

REACTIONS (7)
  - Chest pain [Unknown]
  - Abdominal distension [Unknown]
  - Cerebral artery embolism [Unknown]
  - Essential hypertension [Unknown]
  - Hemiplegia [Unknown]
  - Cerebral infarction [Unknown]
  - Hemiparesis [Unknown]
